FAERS Safety Report 9209787 (Version 1)
Quarter: 2013Q1

REPORT INFORMATION
  Report Type: Spontaneous
  Country: US (occurrence: None)
  Receive Date: 20120820
  Receipt Date: 20120820
  Transmission Date: 20140127
  Serious: No
  Sender: FDA-Public Use
  Company Number: 1000030846

PATIENT
  Age: 65 Year
  Sex: Male

DRUGS (2)
  1. VIIBRYD [Suspect]
     Indication: DEPRESSION
     Route: 048
     Dates: start: 20120420, end: 2012
  2. VIIBRYD [Suspect]
     Indication: DEPRESSION
     Route: 048
     Dates: start: 2012, end: 2012

REACTIONS (6)
  - Diarrhoea [None]
  - Blood pressure increased [None]
  - Somnolence [None]
  - Sedation [None]
  - Anxiety [None]
  - Agitation [None]
